FAERS Safety Report 6733762-9 (Version None)
Quarter: 2010Q2

REPORT INFORMATION
  Report Type: 
  Country: None (occurrence: None)
  Receive Date: 20100520
  Receipt Date: 20100517
  Transmission Date: 20101027
  Serious: Yes (Life-Threatening)
  Sender: FDA-Public Use
  Company Number: PHHY2010US30936

PATIENT
  Sex: Female

DRUGS (2)
  1. EXJADE [Suspect]
     Indication: NEOPLASM
     Dosage: 1000 MG, QOD
     Route: 048
  2. EXJADE [Suspect]
     Indication: HAEMOCHROMATOSIS
     Dosage: 1500 MG, QOD
     Route: 048

REACTIONS (4)
  - DRUG INEFFECTIVE [None]
  - FEELING ABNORMAL [None]
  - SERUM FERRITIN INCREASED [None]
  - TREATMENT NONCOMPLIANCE [None]
